FAERS Safety Report 5506395-X (Version None)
Quarter: 2007Q4

REPORT INFORMATION
  Report Type: 
  Country: None (occurrence: None)
  Receive Date: 20071101
  Receipt Date: 20071101
  Transmission Date: 20080405
  Serious: Yes (Disabling)
  Sender: FDA-Public Use
  Company Number: None

PATIENT
  Age: 83 Year
  Sex: Male

DRUGS (1)
  1. AZITHROMYCIN [Suspect]
     Indication: INFECTION
     Dosage: 500 MG  QDAY  IV
     Route: 042
     Dates: start: 20070920, end: 20070925

REACTIONS (2)
  - INFUSION SITE PAIN [None]
  - INFUSION SITE PRURITUS [None]
